FAERS Safety Report 14412579 (Version 2)
Quarter: 2018Q1

REPORT INFORMATION
  Report Type: Spontaneous
  Country: US (occurrence: US)
  Receive Date: 20180119
  Receipt Date: 20180131
  Transmission Date: 20180509
  Serious: Yes (Hospitalization, Other)
  Sender: FDA-Public Use
  Company Number: US-SAOL THERAPEUTICS-2018SAO00061

PATIENT
  Age: 37 Year
  Sex: Female

DRUGS (4)
  1. BACLOFEN. [Suspect]
     Active Substance: BACLOFEN
     Indication: MUSCLE SPASTICITY
     Dosage: 1500.4 ?G, \DAY
     Route: 037
     Dates: start: 20180103
  2. MORPHINE [Suspect]
     Active Substance: MORPHINE
     Dosage: 125.03 ?G, \DAY
     Route: 037
  3. BACLOFEN. [Suspect]
     Active Substance: BACLOFEN
     Indication: MUSCLE SPASTICITY
     Route: 037
  4. MORPHINE [Suspect]
     Active Substance: MORPHINE
     Dosage: UNK ?G, UNK
     Route: 037

REACTIONS (6)
  - Pain [Unknown]
  - Crying [Unknown]
  - Vomiting [Unknown]
  - Device failure [Unknown]
  - Epilepsy [Unknown]
  - Seizure [Unknown]

NARRATIVE: CASE EVENT DATE: 20180110
